FAERS Safety Report 18224425 (Version 1)
Quarter: 2020Q3

REPORT INFORMATION
  Report Type: Spontaneous
  Country: JP (occurrence: JP)
  Receive Date: 20200902
  Receipt Date: 20200902
  Transmission Date: 20201103
  Serious: Yes (Hospitalization)
  Sender: FDA-Public Use
  Company Number: JP-ANIPHARMA-2020-JP-000317

PATIENT
  Sex: Male

DRUGS (3)
  1. ZOLADEX LA [Suspect]
     Active Substance: GOSERELIN ACETATE
     Dosage: 10.8 MG Q3MO
     Route: 058
  2. CASODEX [Suspect]
     Active Substance: BICALUTAMIDE
     Indication: PROSTATE CANCER
     Dosage: 80 MD QD
     Route: 048
     Dates: start: 2020, end: 2020
  3. UNSPECIFIED [Concomitant]
     Active Substance: UNSPECIFIED INGREDIENT
     Dosage: DOSE AND FREQUENCY UNKNOWN
     Route: 065

REACTIONS (3)
  - Blood cholesterol increased [Unknown]
  - Lacunar infarction [Unknown]
  - Off label use [Unknown]

NARRATIVE: CASE EVENT DATE: 2020
